FAERS Safety Report 9547009 (Version 1)
Quarter: 2013Q2

REPORT INFORMATION
  Report Type: Spontaneous
  Country: US (occurrence: None)
  Receive Date: 20130606
  Receipt Date: 20130606
  Transmission Date: 20140414
  Serious: Yes (Other)
  Sender: FDA-Public Use
  Company Number: 2013PROUSA02623

PATIENT
  Age: 66 Year
  Sex: Male
  Weight: 99.8 kg

DRUGS (8)
  1. PROVENGE [Suspect]
     Indication: PROSTATE CANCER METASTATIC
     Dosage: 250 ML, SINGLE, INTRAVENOUS
     Route: 042
     Dates: start: 20130125, end: 20130125
  2. ALENDRONATE SODIUM (ALENDRONATE SODUM) [Concomitant]
  3. LUPRON DEPOT (LEUPROELIN ACETATE) [Concomitant]
  4. XGEVA (DENOSUMAB) [Concomitant]
  5. FISH OIL (FISH OIL) [Concomitant]
  6. CALCIUM (CALCIUM) [Concomitant]
  7. VITAMINS NOS (VITAMINS NOS) [Concomitant]
  8. FLUTAMIDE (FLUTAMIDE) [Concomitant]

REACTIONS (2)
  - Urinary retention [None]
  - Prostatic specific antigen increased [None]
